FAERS Safety Report 6839469-1 (Version None)
Quarter: 2010Q2

REPORT INFORMATION
  Report Type: 
  Country: None (occurrence: None)
  Receive Date: 20100629
  Receipt Date: 20100419
  Transmission Date: 20101027
  Serious: No
  Sender: FDA-Public Use
  Company Number: US-WYE-H14673510

PATIENT
  Sex: Male

DRUGS (2)
  1. PRISTIQ [Suspect]
  2. NAPROXEN [Suspect]

REACTIONS (2)
  - DIARRHOEA [None]
  - DRUG INTERACTION [None]
